FAERS Safety Report 15204452 (Version 4)
Quarter: 2018Q3

REPORT INFORMATION
  Report Type: Spontaneous
  Country: US (occurrence: US)
  Receive Date: 20180726
  Receipt Date: 20180906
  Transmission Date: 20181010
  Serious: No
  Sender: FDA-Public Use
  Company Number: US-ACTELION-A-NJ2018-175918

PATIENT
  Age: 71 Year
  Sex: Female
  Weight: 107.94 kg

DRUGS (4)
  1. ELIQUIS [Concomitant]
     Active Substance: APIXABAN
  2. TYVASO [Suspect]
     Active Substance: TREPROSTINIL
     Indication: PULMONARY ARTERIAL HYPERTENSION
     Dosage: 18?54, MCG, QID
     Route: 055
     Dates: start: 20180301
  3. OPSUMIT [Suspect]
     Active Substance: MACITENTAN
     Indication: PULMONARY ARTERIAL HYPERTENSION
     Dosage: 10 MG, QD
     Route: 048
     Dates: start: 201807
  4. ADCIRCA [Concomitant]
     Active Substance: TADALAFIL

REACTIONS (14)
  - Hot flush [Unknown]
  - Rash [Unknown]
  - Headache [Recovering/Resolving]
  - Oedema peripheral [Unknown]
  - Paraesthesia oral [Unknown]
  - Rash pruritic [Unknown]
  - Myalgia [Unknown]
  - Rash erythematous [Unknown]
  - Pruritus [Unknown]
  - Feeding disorder [Unknown]
  - Influenza like illness [Unknown]
  - Back pain [Unknown]
  - Feeling abnormal [Unknown]
  - Skin burning sensation [Unknown]

NARRATIVE: CASE EVENT DATE: 2018
